FAERS Safety Report 4927789-7 (Version None)
Quarter: 2006Q1

REPORT INFORMATION
  Report Type: 
  Country: None (occurrence: None)
  Receive Date: 20060228
  Receipt Date: 20050824
  Transmission Date: 20060701
  Serious: Yes (Other)
  Sender: FDA-Public Use
  Company Number: 179

PATIENT
  Age: 66 Year
  Sex: Female

DRUGS (1)
  1. MELPHALAN [Suspect]
     Dates: start: 20001016

REACTIONS (3)
  - DIARRHOEA [None]
  - NAUSEA [None]
  - VOMITING [None]
